FAERS Safety Report 9627993 (Version 2)
Quarter: 2013Q4

REPORT INFORMATION
  Report Type: Report from Study
  Country: DE (occurrence: DE)
  Receive Date: 20131016
  Receipt Date: 20131025
  Transmission Date: 20140711
  Serious: Yes (Disabling)
  Sender: FDA-Public Use
  Company Number: DE-ROCHE-1285665

PATIENT
  Age: 57 Year
  Sex: Female
  Weight: 49 kg

DRUGS (7)
  1. TRASTUZUMAB [Suspect]
     Indication: HER-2 POSITIVE BREAST CANCER
     Dosage: LOADING DOSE CYCLE ONE
     Route: 042
     Dates: start: 20130123
  2. TRASTUZUMAB [Suspect]
     Dosage: MAINTENANCE DOSE, LAST DOSE BEFORE SAE BECAME SERIOUS 18/JUN/2013. DISCONTINUED 10/JUL/2013
     Route: 042
     Dates: end: 20130618
  3. PACLITAXEL [Suspect]
     Indication: HER-2 POSITIVE BREAST CANCER
     Dosage: LAST DOSE PRIOR TO SAE BECAME SERIOUS: 10/APR/2013, DISCONTINUED 17/APR/2013.
     Route: 065
     Dates: start: 20130123, end: 20130410
  4. TIMOLOL [Concomitant]
  5. TRAVOPROST [Concomitant]
  6. PERTUZUMAB [Suspect]
     Indication: HER-2 POSITIVE BREAST CANCER
     Dosage: LOADING DOSE ON CYCLE 1 (840 MG)
     Route: 042
     Dates: start: 20130123
  7. PERTUZUMAB [Suspect]
     Dosage: MAINTENANCE DOSE, LAST DOSE BEFORE SAE BECAME SERIOUS 18/JUN/2013. DISCONTINUED 10/JUL/2013
     Route: 042
     Dates: end: 20130618

REACTIONS (1)
  - Paraesthesia [Not Recovered/Not Resolved]
